FAERS Safety Report 6709327-1 (Version None)
Quarter: 2010Q2

REPORT INFORMATION
  Report Type: 
  Country: None (occurrence: None)
  Receive Date: 20100429
  Receipt Date: 20100420
  Transmission Date: 20101027
  Serious: Yes (Congenital Anomaly)
  Sender: FDA-Public Use
  Company Number: 006361

PATIENT

DRUGS (2)
  1. KEPPRA [Suspect]
     Indication: EPILEPSY
     Dosage: 500 MG BID TRANSPLACENTAL
     Route: 064
  2. DEPAKENE [Suspect]
     Indication: EPILEPSY
     Dosage: 2500 MG TRANSPLACENTAL, 2250 MG TRANSPLACENTAL
     Route: 064
     Dates: start: 20081001

REACTIONS (2)
  - MATERNAL DRUGS AFFECTING FOETUS [None]
  - TALIPES [None]
